FAERS Safety Report 9018075 (Version 1)
Quarter: 2013Q1

REPORT INFORMATION
  Report Type: Spontaneous
  Country: GB (occurrence: GB)
  Receive Date: 20130117
  Receipt Date: 20130117
  Transmission Date: 20140127
  Serious: Yes (Life-Threatening, Disabling)
  Sender: FDA-Public Use
  Company Number: PHHY2013GB004296

PATIENT
  Age: 43 Year
  Sex: Female
  Weight: 88.9 kg

DRUGS (5)
  1. GABAPENTIN [Suspect]
     Indication: NERVE BLOCK
     Dosage: UNK
     Dates: start: 20091101
  2. LEVOTHYROXINE [Concomitant]
  3. PARACETAMOL [Concomitant]
  4. CODEINE PHOSPHATE [Concomitant]
  5. DICLOFENAC SODIUM [Concomitant]

REACTIONS (5)
  - Mental disorder [Unknown]
  - Suicidal ideation [Recovered/Resolved]
  - Aggression [Unknown]
  - Depression [Unknown]
  - Withdrawal syndrome [Unknown]
